FAERS Safety Report 6717143-X (Version None)
Quarter: 2010Q2

REPORT INFORMATION
  Report Type: 
  Country: None (occurrence: None)
  Receive Date: 20100505
  Receipt Date: 20100422
  Transmission Date: 20101027
  Serious: Yes (Hospitalization, Other)
  Sender: FDA-Public Use
  Company Number: 009903

PATIENT
  Sex: Female
  Weight: 73 kg

DRUGS (2)
  1. LACOSAMIDE [Suspect]
     Indication: EPILEPSY
     Dosage: (100 MG BID ORAL)
     Route: 048
     Dates: start: 20090724
  2. LEVETIRACETAM [Suspect]
     Indication: EPILEPSY
     Dosage: (1500 MG BID, CONTINUING AS TID INSTEAD OF BID ORAL), (1000 MG TID ORAL)
     Route: 048
     Dates: start: 20090724

REACTIONS (3)
  - CONVULSION [None]
  - DRUG EXPOSURE DURING PREGNANCY [None]
  - ROAD TRAFFIC ACCIDENT [None]
